FAERS Safety Report 9139161 (Version 2)
Quarter: 2014Q1

REPORT INFORMATION
  Report Type: Spontaneous
  Country: US (occurrence: US)
  Receive Date: 20130305
  Receipt Date: 20140128
  Transmission Date: 20141002
  Serious: Yes (Other)
  Sender: FDA-Public Use
  Company Number: US-BAYER-2013-026920

PATIENT
  Age: 32 Year
  Sex: Female

DRUGS (8)
  1. YAZ [Suspect]
  2. YASMIN [Suspect]
  3. OCELLA [Suspect]
  4. PANTOPRAZOLE [Concomitant]
     Dosage: 40 MG, UNK
     Route: 048
     Dates: start: 20120104
  5. IBUPROFEN [Concomitant]
     Dosage: 800 MG, UNK
     Route: 048
     Dates: start: 20120110
  6. SUCRALFATE [Concomitant]
     Dosage: 1 GM, TAKE 1 TABLE BEFORE MEALS AND AT BEDTIME
     Route: 048
     Dates: start: 20120321
  7. KETOROLAC [Concomitant]
     Dosage: 10 MG, UNK
     Route: 048
     Dates: start: 20120321
  8. ZYRTEC [Concomitant]
     Route: 048

REACTIONS (6)
  - Cholecystectomy [None]
  - Emotional distress [None]
  - Pain [None]
  - Injury [None]
  - Pain [None]
  - Biliary dyskinesia [None]
